FAERS Safety Report 8516319-9 (Version None)
Quarter: 2012Q3

REPORT INFORMATION
  Report Type: 
  Country: None (occurrence: None)
  Receive Date: 20120718
  Receipt Date: 20120709
  Transmission Date: 20120928
  Serious: Yes (Life-Threatening, Hospitalization, Other)
  Sender: FDA-Public Use
  Company Number: GB-009507513-1203GBR00063

PATIENT

DRUGS (10)
  1. INDAPAMIDE [Concomitant]
     Indication: HYPERTENSION
     Dosage: 2.5 MG, QD
  2. DILTIAZEM [Concomitant]
     Dosage: 60 MG, QD
  3. FLUTICASONE PROPIONATE/SALMETEROL [Concomitant]
  4. AMOXICILLIN [Concomitant]
  5. COZAAR [Suspect]
     Dosage: UNK UNK, QD
     Route: 048
  6. ASPIRIN [Concomitant]
     Dosage: 75 MG, QD
  7. ALBUTEROL [Concomitant]
  8. SIMVASTATIN [Concomitant]
     Dosage: 40 MG, QD
  9. FOLIC ACID [Concomitant]
  10. SPIRONOLACTONE [Concomitant]
     Dosage: 25 MG, QD

REACTIONS (3)
  - SWOLLEN TONGUE [None]
  - SWELLING FACE [None]
  - STRIDOR [None]
